FAERS Safety Report 25451643 (Version 2)
Quarter: 2025Q3

REPORT INFORMATION
  Report Type: Spontaneous
  Country: US (occurrence: US)
  Receive Date: 20250618
  Receipt Date: 20250707
  Transmission Date: 20251021
  Serious: Yes (Other)
  Sender: ELI LILLY AND COMPANY
  Company Number: US-ELI_LILLY_AND_COMPANY-US202506013454

PATIENT
  Age: 83 Year
  Sex: Male
  Weight: 80.726 kg

DRUGS (3)
  1. KISUNLA [Suspect]
     Active Substance: DONANEMAB-AZBT
     Indication: Dementia Alzheimer^s type
     Dosage: 700 MG, MONTHLY (1/M)
     Route: 042
     Dates: start: 20250325
  2. KISUNLA [Suspect]
     Active Substance: DONANEMAB-AZBT
     Dosage: 700 MG, MONTHLY (1/M), 2ND INFUSION
     Route: 042
     Dates: start: 20250423
  3. KISUNLA [Suspect]
     Active Substance: DONANEMAB-AZBT
     Dosage: 700 MG, MONTHLY (1/M), THIRD INFUSION
     Route: 042
     Dates: start: 20250520

REACTIONS (1)
  - Amyloid related imaging abnormality-oedema/effusion [Recovering/Resolving]
